FAERS Safety Report 22196462 (Version 1)
Quarter: 2023Q2

REPORT INFORMATION
  Report Type: Spontaneous
  Country: US (occurrence: None)
  Receive Date: 20230410
  Receipt Date: 20230410
  Transmission Date: 20230722
  Serious: Yes (unspecified)
  Sender: FDA-Public Use
  Company Number: None

PATIENT
  Age: 35 Year
  Sex: Female

DRUGS (1)
  1. HERBALS\TETRAHYDROCANNABINOL MIXED [Suspect]
     Active Substance: HERBALS\TETRAHYDROCANNABINOL MIXED

REACTIONS (7)
  - Loss of consciousness [None]
  - Diabetes mellitus [None]
  - Unresponsive to stimuli [None]
  - Blood glucose increased [None]
  - Alcohol use [None]
  - Substance use [None]
  - Refusal of treatment by patient [None]

NARRATIVE: CASE EVENT DATE: 20230325
